FAERS Safety Report 4563269-9 (Version None)
Quarter: 2005Q1

REPORT INFORMATION
  Report Type: 
  Country: None (occurrence: None)
  Receive Date: 20050125
  Receipt Date: 20050112
  Transmission Date: 20050727
  Serious: Yes (Death)
  Sender: FDA-Public Use
  Company Number: GB-2004-034749

PATIENT
  Age: 41 Year
  Sex: Female

DRUGS (1)
  1. BETAFERON [Suspect]
     Dosage: 8 MIU, SUBCUTANEOUS
     Route: 058
     Dates: start: 20030903

REACTIONS (3)
  - ARTHRALGIA [None]
  - METASTASIS [None]
  - METASTATIC NEOPLASM [None]
